FAERS Safety Report 8175428-7 (Version None)
Quarter: 2012Q1

REPORT INFORMATION
  Report Type: 
  Country: None (occurrence: None)
  Receive Date: 20120229
  Receipt Date: 20120221
  Transmission Date: 20120608
  Serious: Yes (Other)
  Sender: FDA-Public Use
  Company Number: AU-ASTRAZENECA-2012SE02352

PATIENT
  Age: 27098 Day
  Sex: Female

DRUGS (2)
  1. CRESTOR [Suspect]
     Route: 048
     Dates: start: 20120112
  2. CRESTOR [Suspect]
     Route: 048
     Dates: start: 20111201

REACTIONS (3)
  - MALAISE [None]
  - DRY MOUTH [None]
  - GASTRIC HAEMORRHAGE [None]
